FAERS Safety Report 6567609-0 (Version None)
Quarter: 2010Q1

REPORT INFORMATION
  Report Type: 
  Country: None (occurrence: None)
  Receive Date: 20100202
  Receipt Date: 20100129
  Transmission Date: 20100710
  Serious: Yes (Hospitalization)
  Sender: FDA-Public Use
  Company Number: DE-MERCK-1002DEU00001

PATIENT
  Age: 70 Year
  Sex: Female
  Weight: 45 kg

DRUGS (15)
  1. ZOCOR [Suspect]
     Indication: DYSLIPIDAEMIA
     Route: 048
     Dates: start: 20050101
  2. DREISAVIT N [Concomitant]
     Indication: HYPOVITAMINOSIS
     Route: 048
     Dates: start: 20050101, end: 20090726
  3. FENTANYL [Suspect]
     Indication: PAIN
     Route: 061
     Dates: start: 20090601, end: 20090727
  4. FOSRENOL [Concomitant]
     Indication: RENAL FAILURE
     Route: 048
     Dates: start: 20070701
  5. DIGIMED [Concomitant]
     Indication: CORONARY ARTERY DISEASE
     Route: 048
     Dates: start: 20070601
  6. MCP [Concomitant]
     Indication: NAUSEA
     Route: 048
     Dates: start: 20050101, end: 20090731
  7. ASPIRIN [Concomitant]
     Indication: CORONARY ARTERY DISEASE
     Route: 048
     Dates: start: 20050101
  8. DIPYRONE [Concomitant]
     Indication: PAIN
     Route: 048
     Dates: start: 20090601
  9. RESTEX [Concomitant]
     Indication: RESTLESS LEGS SYNDROME
     Route: 048
     Dates: start: 20060101
  10. CARVEDILOL [Concomitant]
     Indication: HYPERTENSION
     Route: 048
     Dates: start: 20060101
  11. BLOPRESS [Concomitant]
     Indication: HYPERTENSION
     Route: 048
     Dates: start: 20070101
  12. OMEPRAZOLE [Concomitant]
     Indication: PROPHYLAXIS AGAINST GASTROINTESTINAL ULCER
     Route: 048
     Dates: start: 20050101
  13. MIMPARA [Concomitant]
     Indication: HYPERPARATHYROIDISM SECONDARY
     Route: 048
     Dates: start: 20060101
  14. REPAGLINIDE [Concomitant]
     Indication: TYPE 2 DIABETES MELLITUS
     Route: 048
     Dates: start: 20070101
  15. ACTONEL [Concomitant]
     Indication: OSTEOPOROSIS
     Route: 048
     Dates: start: 20080101

REACTIONS (2)
  - SOMNOLENCE [None]
  - TRANSAMINASES INCREASED [None]
